FAERS Safety Report 15483231 (Version 1)
Quarter: 2018Q4

REPORT INFORMATION
  Report Type: Spontaneous
  Country: US (occurrence: US)
  Receive Date: 20181010
  Receipt Date: 20181010
  Transmission Date: 20190205
  Serious: Yes (Other)
  Sender: FDA-Public Use
  Company Number: US-AKRON, INC.-2055898

PATIENT
  Sex: Female

DRUGS (1)
  1. THERATEARS LUBRICANT EYE DROPS [Suspect]
     Active Substance: CARBOXYMETHYLCELLULOSE SODIUM
     Indication: DRY EYE
     Route: 047

REACTIONS (2)
  - Foreign body in eye [Recovered/Resolved]
  - Eye pain [Recovered/Resolved]
